FAERS Safety Report 6146759-7 (Version None)
Quarter: 2009Q2

REPORT INFORMATION
  Report Type: 
  Country: None (occurrence: None)
  Receive Date: 20090403
  Receipt Date: 20090403
  Transmission Date: 20091009
  Serious: Yes (Other)
  Sender: FDA-Public Use
  Company Number: None

PATIENT
  Sex: Female
  Weight: 83.9154 kg

DRUGS (1)
  1. LAMOTRIGINE [Suspect]
     Indication: EPILEPSY
     Dosage: 300 MG TID PO
     Route: 048
     Dates: start: 20040601, end: 20040920

REACTIONS (5)
  - AURA [None]
  - DIZZINESS [None]
  - NAUSEA [None]
  - PRODUCT QUALITY ISSUE [None]
  - VISION BLURRED [None]
